FAERS Safety Report 7511318-8 (Version None)
Quarter: 2011Q2

REPORT INFORMATION
  Report Type: 
  Country: None (occurrence: None)
  Receive Date: 20110531
  Receipt Date: 20110504
  Transmission Date: 20111010
  Serious: Yes (Other)
  Sender: FDA-Public Use
  Company Number: US-BAYER-201027312NA

PATIENT
  Age: 28 Year
  Sex: Female
  Weight: 93.878 kg

DRUGS (5)
  1. CYMBALTA [Concomitant]
  2. OXYCODONE AND ACETAMINOPHEN [Concomitant]
  3. YASMIN [Suspect]
     Indication: PRODUCT USED FOR UNKNOWN INDICATION
     Route: 048
     Dates: start: 20080101
  4. IMODIUM [Concomitant]
  5. PHENERGAN HCL [Concomitant]

REACTIONS (3)
  - CHOLECYSTITIS CHRONIC [None]
  - GALLBLADDER INJURY [None]
  - CHOLELITHIASIS [None]
